FAERS Safety Report 12963385 (Version 3)
Quarter: 2017Q2

REPORT INFORMATION
  Report Type: Spontaneous
  Country: US (occurrence: US)
  Receive Date: 20161122
  Receipt Date: 20170420
  Transmission Date: 20170830
  Serious: Yes (Other)
  Sender: FDA-Public Use
  Company Number: US-BTG INTERNATIONAL LTD-BTG01104

PATIENT

DRUGS (3)
  1. CROFAB [Suspect]
     Active Substance: CROTALIDAE POLYVALENT IMMUNE FAB (OVINE)
     Indication: SNAKE BITE
     Dosage: 4 DF, UNK
     Dates: start: 20160619, end: 2016
  2. CROFAB [Suspect]
     Active Substance: CROTALIDAE POLYVALENT IMMUNE FAB (OVINE)
     Dosage: ESTIMATION OF ABOUT 20-30 VIALS IN TOTAL
     Dates: start: 2016, end: 2016
  3. CROFAB [Suspect]
     Active Substance: CROTALIDAE POLYVALENT IMMUNE FAB (OVINE)
     Dosage: 4 DF, UNK
     Dates: start: 2016, end: 2016

REACTIONS (6)
  - Weight increased [Unknown]
  - Haemorrhage [Recovered/Resolved]
  - Exposure during pregnancy [Unknown]
  - Delivery [Unknown]
  - Malaise [Recovered/Resolved]
  - Fatigue [Unknown]

NARRATIVE: CASE EVENT DATE: 2016
